FAERS Safety Report 18630398 (Version 1)
Quarter: 2020Q4

REPORT INFORMATION
  Report Type: Spontaneous
  Country: US (occurrence: US)
  Receive Date: 20201217
  Receipt Date: 20201217
  Transmission Date: 20210114
  Serious: Yes (Other)
  Sender: FDA-Public Use
  Company Number: US-RB-004329-08

PATIENT

DRUGS (2)
  1. BUPRENEX [Suspect]
     Active Substance: BUPRENORPHINE HYDROCHLORIDE
     Dosage: TREATMENT DURATION 23 ? 12 DAYS
     Route: 060
  2. BUPRENEX [Suspect]
     Active Substance: BUPRENORPHINE HYDROCHLORIDE
     Indication: DRUG WITHDRAWAL SYNDROME NEONATAL
     Dosage: INITIALLY RECEIVED 13.2  ?G/KG (FOLLOWING DOSES GIVEN UNKNOWN)
     Route: 060

REACTIONS (6)
  - Aminoaciduria [Unknown]
  - Poor feeding infant [Unknown]
  - Gastrooesophageal reflux disease [Unknown]
  - Fungal paronychia [Unknown]
  - Cytomegalovirus infection [Unknown]
  - Transaminases increased [Unknown]
